FAERS Safety Report 20158075 (Version 2)
Quarter: 2022Q1

REPORT INFORMATION
  Report Type: Spontaneous
  Country: US (occurrence: US)
  Receive Date: 20211207
  Receipt Date: 20220109
  Transmission Date: 20220423
  Serious: No
  Sender: FDA-Public Use
  Company Number: US-SA-SAC20211201000985

PATIENT
  Age: 47 Year
  Sex: Male

DRUGS (1)
  1. DUPIXENT [Suspect]
     Active Substance: DUPILUMAB
     Indication: Asthma
     Dosage: 300 MG, QOW
     Route: 058
     Dates: start: 202111

REACTIONS (4)
  - Tenderness [Not Recovered/Not Resolved]
  - Erythema [Not Recovered/Not Resolved]
  - Adverse drug reaction [Unknown]
  - Fear [Unknown]

NARRATIVE: CASE EVENT DATE: 20211101
